FAERS Safety Report 4487677-X (Version None)
Quarter: 2004Q4

REPORT INFORMATION
  Report Type: 
  Country: None (occurrence: None)
  Receive Date: 20041027
  Receipt Date: 20041027
  Transmission Date: 20050328
  Serious: Yes (Hospitalization)
  Sender: FDA-Public Use
  Company Number: None

PATIENT
  Age: 76 Year
  Sex: Male
  Weight: 76.4 kg

DRUGS (6)
  1. GEMCITABINE [Suspect]
     Indication: NON-SMALL CELL LUNG CANCER
     Dosage: 1500 MG/M2 Q2WEEKS INTRAVENOU
     Route: 042
     Dates: start: 20041001, end: 20041015
  2. PEMETREXED [Suspect]
     Indication: NON-SMALL CELL LUNG CANCER
     Dosage: 500 MG/M2 Q2WEEKS INTRAVENOU
     Route: 042
     Dates: start: 20041010, end: 20041015
  3. FOLIC ACID [Concomitant]
  4. GABAPENTIN [Concomitant]
  5. MEGACE [Concomitant]
  6. OMEPRAZOLE [Concomitant]

REACTIONS (1)
  - CELLULITIS [None]
